FAERS Safety Report 5096752-0 (Version None)
Quarter: 2006Q3

REPORT INFORMATION
  Report Type: 
  Country: None (occurrence: None)
  Receive Date: 20060831
  Receipt Date: 20060821
  Transmission Date: 20061208
  Serious: Yes (Hospitalization)
  Sender: FDA-Public Use
  Company Number: 2006JP002867

PATIENT
  Sex: Female
  Weight: 50 kg

DRUGS (5)
  1. TACROLIMUS CAPSULES (TACROLIMUS CAPSULES) [Suspect]
     Indication: RHEUMATOID ARTHRITIS
     Dosage: 1 MG, ORAL; SEE IMAGE
     Route: 048
     Dates: start: 20060227, end: 20060305
  2. TACROLIMUS CAPSULES (TACROLIMUS CAPSULES) [Suspect]
     Indication: RHEUMATOID ARTHRITIS
     Dosage: 1 MG, ORAL; SEE IMAGE
     Route: 048
     Dates: start: 20060306, end: 20060326
  3. TACROLIMUS CAPSULES (TACROLIMUS CAPSULES) [Suspect]
     Indication: RHEUMATOID ARTHRITIS
     Dosage: 1 MG, ORAL; SEE IMAGE
     Route: 048
     Dates: start: 20060327
  4. PREDNISOLONE [Concomitant]
  5. VOLTAREN [Concomitant]

REACTIONS (2)
  - ARTHRITIS BACTERIAL [None]
  - DECUBITUS ULCER [None]
